FAERS Safety Report 21781286 (Version 2)
Quarter: 2023Q2

REPORT INFORMATION
  Report Type: Spontaneous
  Country: US (occurrence: US)
  Receive Date: 20221227
  Receipt Date: 20230628
  Transmission Date: 20230722
  Serious: Yes (Other)
  Sender: FDA-Public Use
  Company Number: US-ASTELLAS-2022US041426

PATIENT
  Age: 71 Year
  Sex: Male

DRUGS (3)
  1. PADCEV [Suspect]
     Active Substance: ENFORTUMAB VEDOTIN-EJFV
     Indication: Transitional cell carcinoma
     Route: 065
     Dates: start: 20211006
  2. PADCEV [Suspect]
     Active Substance: ENFORTUMAB VEDOTIN-EJFV
     Dosage: 1 MG/M2, UNKNOWN FREQ. (C2)
     Route: 065
  3. PADCEV [Suspect]
     Active Substance: ENFORTUMAB VEDOTIN-EJFV
     Dosage: 0.75 MG/M2, UNKNOWN FREQ. (C4)
     Route: 065

REACTIONS (7)
  - Rash [Not Recovered/Not Resolved]
  - Neuropathy peripheral [Recovering/Resolving]
  - Disease progression [Recovering/Resolving]
  - Hyperglycaemia [Unknown]
  - Malaise [Unknown]
  - Intervertebral disc disorder [Unknown]
  - Osteoarthritis [Unknown]

NARRATIVE: CASE EVENT DATE: 20220922
